FAERS Safety Report 5991103-9 (Version None)
Quarter: 2008Q4

REPORT INFORMATION
  Report Type: 
  Country: None (occurrence: None)
  Receive Date: 20081211
  Receipt Date: 20081203
  Transmission Date: 20090506
  Serious: Yes (Other)
  Sender: FDA-Public Use
  Company Number: US-TYCO HEALTHCARE/MALLINCKRODT-T200802052

PATIENT

DRUGS (17)
  1. TECHNETIUM TC 99M SESTAMIBI [Suspect]
     Indication: SCAN MYOCARDIAL PERFUSION
     Dosage: UNK, UNK
     Route: 042
     Dates: start: 20081203, end: 20081203
  2. TECHNETIUM TC 99M SESTAMIBI [Suspect]
     Dosage: UNK, UNK
     Route: 042
     Dates: start: 20081203, end: 20081203
  3. ULTRA-TECHNEKOW [Suspect]
     Indication: SCAN MYOCARDIAL PERFUSION
     Dosage: 8.1 MCI, SINGLE
     Route: 042
     Dates: start: 20081203, end: 20081203
  4. ULTRA-TECHNEKOW [Suspect]
     Dosage: 34.3 MCI, SINGLE
     Route: 042
     Dates: start: 20081203, end: 20081203
  5. PREMARIN [Concomitant]
     Dosage: .625 MG, QD
  6. K-TAB [Concomitant]
     Dosage: 10 MEQ, BID
  7. HYDROCODONE BITARTRATE AND ACETAMINOPHEN [Concomitant]
     Dosage: ONE, EVERY 6 HOURS PRN
  8. METOPROLOL SUCCINATE [Concomitant]
     Dosage: 50 MG, QD (QHS)
  9. LISINOPRIL AND HYDROCHLOROTHIAZIDE [Concomitant]
     Dosage: ONE, QD
  10. FLUOXETINE [Concomitant]
     Dosage: 40 MG, QD
  11. SIMVASTATIN [Concomitant]
     Dosage: 20 MG, QD (QHS)
  12. FUROSEMIDE [Concomitant]
     Dosage: 20 MG, TID
  13. METFORMINE HCL [Concomitant]
     Dosage: 500 MG, BID (MORNING AND NIGHT)
  14. VITAMIN D3 [Concomitant]
     Dosage: 400 IU, 5 DAILY
  15. CALCIUM [Concomitant]
     Dosage: 600 MG, QD
  16. FISH OIL [Concomitant]
     Dosage: 1200 MG, BID
  17. TRAMADOL HCL [Concomitant]
     Dosage: 50 MG, 1 EVERY 4 HRS

REACTIONS (3)
  - HYPOAESTHESIA ORAL [None]
  - PARAESTHESIA ORAL [None]
  - SWOLLEN TONGUE [None]
